FAERS Safety Report 4330751-9 (Version None)
Quarter: 2004Q1

REPORT INFORMATION
  Report Type: 
  Country: None (occurrence: None)
  Receive Date: 20040331
  Receipt Date: 20040319
  Transmission Date: 20041129
  Serious: No
  Sender: FDA-Public Use
  Company Number: 02100-JPN-04-0065

PATIENT
  Age: 37 Year
  Sex: Male

DRUGS (3)
  1. CILOSTAZOL [Suspect]
     Dosage: ORAL
     Route: 048
     Dates: start: 20031201, end: 20040318
  2. AMLODIPINE BESYLATE [Suspect]
     Indication: CEREBRAL INFARCTION
     Dosage: ORAL
     Route: 048
     Dates: start: 20040201, end: 20040318
  3. DOXAZOSIN MESYLATE [Suspect]
     Dosage: ORAL
     Route: 048
     Dates: start: 20040301, end: 20040318

REACTIONS (1)
  - GRANULOCYTOPENIA [None]
